FAERS Safety Report 8444230-0 (Version None)
Quarter: 2012Q2

REPORT INFORMATION
  Report Type: 
  Country: None (occurrence: None)
  Receive Date: 20120618
  Receipt Date: 20120328
  Transmission Date: 20120825
  Serious: No
  Sender: FDA-Public Use
  Company Number: US-GLAXOSMITHKLINE-A0971499A

PATIENT
  Age: 20 Year
  Sex: Female

DRUGS (3)
  1. OMEPRAZOLE [Concomitant]
  2. CLOBETASOL PROPIONATE [Suspect]
     Indication: ECZEMA
     Route: 061
     Dates: start: 20120312
  3. ACNE MEDICATION [Concomitant]
     Route: 061

REACTIONS (4)
  - LOCAL SWELLING [None]
  - VASODILATATION [None]
  - OEDEMA PERIPHERAL [None]
  - DYSPNOEA [None]
